FAERS Safety Report 25917158 (Version 2)
Quarter: 2025Q4

REPORT INFORMATION
  Report Type: Spontaneous
  Country: AU (occurrence: AU)
  Receive Date: 20251014
  Receipt Date: 20251209
  Transmission Date: 20260117
  Serious: Yes (Other)
  Sender: CSL BEHRING
  Company Number: AU-BEH-2025208561

PATIENT
  Age: 3 Month
  Sex: Female
  Weight: 6.34 kg

DRUGS (26)
  1. HUMAN IMMUNOGLOBULIN G [Suspect]
     Active Substance: HUMAN IMMUNOGLOBULIN G
     Indication: Hypogammaglobulinaemia
     Dosage: UNK UNK, QMT
     Route: 042
     Dates: start: 20250530, end: 20250530
  2. HUMAN IMMUNOGLOBULIN G [Suspect]
     Active Substance: HUMAN IMMUNOGLOBULIN G
     Dosage: 5 G
     Route: 042
     Dates: start: 20250326, end: 20250326
  3. HUMAN IMMUNOGLOBULIN G [Suspect]
     Active Substance: HUMAN IMMUNOGLOBULIN G
     Dosage: 5 G
     Route: 042
     Dates: start: 20250331, end: 20250331
  4. ASPIRIN [Concomitant]
     Active Substance: ASPIRIN
     Indication: Liver transplant
     Dosage: 30 MG
  5. ASPIRIN [Concomitant]
     Active Substance: ASPIRIN
     Dosage: 25 MG
     Route: 048
     Dates: start: 20250310
  6. LANSOPRAZOLE [Concomitant]
     Active Substance: LANSOPRAZOLE
  7. BACTRIM [Concomitant]
     Active Substance: SULFAMETHOXAZOLE\TRIMETHOPRIM
     Indication: Prophylaxis
  8. BACTRIM [Concomitant]
     Active Substance: SULFAMETHOXAZOLE\TRIMETHOPRIM
     Indication: Prophylaxis
  9. MAGNESIUM SULFATE [Concomitant]
     Active Substance: MAGNESIUM SULFATE
  10. NYSTATIN [Concomitant]
     Active Substance: NYSTATIN
  11. AMLODIPINE [Concomitant]
     Active Substance: AMLODIPINE BESYLATE
     Indication: Hypertension
     Dosage: 1.04 MG
     Route: 048
     Dates: start: 20250308
  12. SPIRONOLACTONE [Concomitant]
     Active Substance: SPIRONOLACTONE
  13. ACYCLOVIR [Concomitant]
     Active Substance: ACYCLOVIR
     Indication: Liver transplant
     Dosage: 200 MG
     Route: 048
     Dates: start: 20250319
  14. SODIUM BICARBONATE [Concomitant]
     Active Substance: SODIUM BICARBONATE
  15. URSODIOL [Concomitant]
     Active Substance: URSODIOL
  16. RITUXIMAB [Concomitant]
     Active Substance: RITUXIMAB
  17. ACETAMINOPHEN [Concomitant]
     Active Substance: ACETAMINOPHEN
     Indication: Premedication
  18. CETIRIZINE HYDROCHLORIDE [Concomitant]
     Active Substance: CETIRIZINE HYDROCHLORIDE
     Indication: Premedication
  19. ENOXAPARIN [Concomitant]
     Active Substance: ENOXAPARIN
     Indication: Liver transplant
     Dosage: 10 MG
     Route: 058
     Dates: start: 20250314
  20. ESOMEPRAZOLE [Concomitant]
     Active Substance: ESOMEPRAZOLE
     Indication: Liver transplant
     Dosage: 5 MG
     Route: 048
     Dates: start: 20250314
  21. MYCOPHENOLIC ACID [Concomitant]
     Active Substance: MYCOPHENOLIC ACID
     Indication: Liver transplant
     Dosage: UNK
  22. MYCOPHENOLIC ACID [Concomitant]
     Active Substance: MYCOPHENOLIC ACID
     Dosage: 80 MG
     Route: 048
     Dates: start: 20250222
  23. PREDNISOLONE [Concomitant]
     Active Substance: PREDNISOLONE
     Indication: Liver transplant
     Dosage: 5.25 MG
     Route: 048
     Dates: start: 20250226
  24. TRIMETHOPRIM [Concomitant]
     Active Substance: TRIMETHOPRIM
     Indication: Liver transplant
     Dosage: 12.8 MG
     Route: 048
     Dates: start: 20250226
  25. TACROLIMUS [Concomitant]
     Active Substance: TACROLIMUS
     Indication: Liver transplant
     Dosage: 1.3 MG
     Route: 048
     Dates: start: 20250319
  26. TACROLIMUS [Concomitant]
     Active Substance: TACROLIMUS
     Dosage: UNK

REACTIONS (17)
  - Infusion related reaction [Recovered/Resolved]
  - Infusion related reaction [Recovered/Resolved]
  - Tachypnoea [Recovered/Resolved]
  - Tachypnoea [Recovered/Resolved]
  - Blood pressure abnormal [Recovered/Resolved]
  - Blood pressure abnormal [Recovered/Resolved]
  - Tachycardia [Recovered/Resolved]
  - Tachypnoea [Recovered/Resolved]
  - Tachycardia [Recovered/Resolved]
  - Heart rate increased [Recovered/Resolved]
  - Dyspnoea [Recovered/Resolved]
  - Pyrexia [Recovered/Resolved]
  - Urticaria [Recovered/Resolved]
  - Restlessness [Recovered/Resolved]
  - Oxygen saturation decreased [Recovered/Resolved]
  - Irritability [Recovered/Resolved]
  - Restlessness [Recovered/Resolved]

NARRATIVE: CASE EVENT DATE: 20250326
